FAERS Safety Report 4859239-3 (Version None)
Quarter: 2005Q4

REPORT INFORMATION
  Report Type: 
  Country: None (occurrence: None)
  Receive Date: 20051219
  Receipt Date: 20051207
  Transmission Date: 20060501
  Serious: Yes (Hospitalization)
  Sender: FDA-Public Use
  Company Number: US-AMGEN-US160601

PATIENT
  Age: 74 Year
  Sex: Female

DRUGS (2)
  1. PROCRIT [Suspect]
     Indication: RENAL FAILURE CHRONIC
     Dates: start: 20050701
  2. IRON DEXTRAN [Concomitant]
     Route: 042

REACTIONS (3)
  - ANAEMIA [None]
  - IRON DEFICIENCY [None]
  - OCCULT BLOOD POSITIVE [None]
